FAERS Safety Report 17911384 (Version 1)
Quarter: 2020Q2

REPORT INFORMATION
  Report Type: Spontaneous
  Country: CA (occurrence: CA)
  Receive Date: 20200618
  Receipt Date: 20200618
  Transmission Date: 20200714
  Serious: No
  Sender: FDA-Public Use
  Company Number: CA-PFIZER INC-2020184108

PATIENT
  Sex: Male

DRUGS (1)
  1. FRAGMIN [Suspect]
     Active Substance: DALTEPARIN SODIUM
     Dosage: UNK (5000 IU PER 0.2 ML)

REACTIONS (2)
  - Needle issue [Unknown]
  - Foreign body [Unknown]

NARRATIVE: CASE EVENT DATE: 202004
